FAERS Safety Report 7567892-9 (Version None)
Quarter: 2011Q2

REPORT INFORMATION
  Report Type: 
  Country: None (occurrence: None)
  Receive Date: 20110623
  Receipt Date: 20110622
  Transmission Date: 20111010
  Serious: No
  Sender: FDA-Public Use
  Company Number: IT-SANOFI-AVENTIS-2011SA037937

PATIENT
  Age: 33 Year
  Sex: Female

DRUGS (1)
  1. ARAVA [Suspect]
     Indication: JUVENILE ARTHRITIS
     Route: 048
     Dates: start: 20101125, end: 20110606

REACTIONS (2)
  - DRUG INEFFECTIVE [None]
  - DRUG EXPOSURE DURING PREGNANCY [None]
